FAERS Safety Report 9008757 (Version 1)
Quarter: 2013Q1

REPORT INFORMATION
  Report Type: Spontaneous
  Country: US (occurrence: US)
  Receive Date: 20130111
  Receipt Date: 20130111
  Transmission Date: 20140127
  Serious: Yes (Other)
  Sender: FDA-Public Use
  Company Number: US-009507513-0911USA00751

PATIENT
  Age: 15 Year
  Sex: Male
  Weight: 58 kg

DRUGS (10)
  1. SINGULAIR [Suspect]
     Indication: ASTHMA
     Dosage: 10 MG, QD
     Route: 048
     Dates: start: 20061001, end: 20090401
  2. SINGULAIR [Suspect]
     Indication: MULTIPLE ALLERGIES
  3. XOLAIR [Suspect]
     Indication: ASTHMA
     Dosage: 150 MG, QM
     Route: 058
     Dates: start: 20061001, end: 20090401
  4. XOLAIR [Suspect]
     Indication: IMMUNOGLOBULINS INCREASED
  5. XOLAIR [Suspect]
     Indication: MULTIPLE ALLERGIES
  6. ADVAIR [Concomitant]
  7. PULMICORT [Concomitant]
  8. FLONASE [Concomitant]
  9. ALBUTEROL [Concomitant]
  10. ZYRTEC [Concomitant]

REACTIONS (5)
  - Ankle fracture [Not Recovered/Not Resolved]
  - Bone fragmentation [Not Recovered/Not Resolved]
  - Fall [Not Recovered/Not Resolved]
  - Foot fracture [Not Recovered/Not Resolved]
  - Hand fracture [Not Recovered/Not Resolved]
